FAERS Safety Report 10475572 (Version 1)
Quarter: 2014Q3

REPORT INFORMATION
  Report Type: Report from Study
  Country: US (occurrence: US)
  Receive Date: 20140925
  Receipt Date: 20140925
  Transmission Date: 20150326
  Serious: No
  Sender: FDA-Public Use
  Company Number: US-ALEXION-A200901517

PATIENT
  Sex: Male

DRUGS (1)
  1. SOLIRIS [Suspect]
     Active Substance: ECULIZUMAB
     Indication: PAROXYSMAL NOCTURNAL HAEMOGLOBINURIA
     Dosage: UNK
     Route: 042

REACTIONS (10)
  - Haemoglobinuria [Unknown]
  - Erectile dysfunction [Unknown]
  - Chromaturia [Unknown]
  - Transfusion [Unknown]
  - Thrombosis [Unknown]
  - Back pain [Unknown]
  - Fatigue [Unknown]
  - Hepatic enzyme increased [Unknown]
  - Pyrexia [Unknown]
  - Quality of life decreased [Not Recovered/Not Resolved]
